FAERS Safety Report 10967011 (Version 1)
Quarter: 2015Q1

REPORT INFORMATION
  Report Type: Spontaneous
  Country: None (occurrence: None)
  Receive Date: 20150327
  Receipt Date: 20150327
  Transmission Date: 20150721
  Serious: Yes (Disabling)
  Sender: FDA-Public Use
  Company Number: None

PATIENT
  Age: 60 Year
  Sex: Female
  Weight: 78.47 kg

DRUGS (11)
  1. CELECOXIB. [Suspect]
     Active Substance: CELECOXIB
  2. TEGRETOL XR [Concomitant]
     Active Substance: CARBAMAZEPINE
  3. PROTONIX [Concomitant]
     Active Substance: PANTOPRAZOLE SODIUM
  4. PROVIGIL [Concomitant]
     Active Substance: MODAFINIL
  5. VITAMIN D [Concomitant]
     Active Substance: CHOLECALCIFEROL
  6. VITAMIN C [Concomitant]
     Active Substance: ASCORBIC ACID
  7. SINGULAIR [Concomitant]
     Active Substance: MONTELUKAST SODIUM
  8. VITAMIN B [Concomitant]
     Active Substance: VITAMIN B
  9. CALCIUM [Concomitant]
     Active Substance: CALCIUM
  10. ADVAIR HFA [Concomitant]
     Active Substance: FLUTICASONE PROPIONATE\SALMETEROL XINAFOATE
  11. CELEBREX [Concomitant]
     Active Substance: CELECOXIB

REACTIONS (9)
  - Neck pain [None]
  - Arthralgia [None]
  - Sleep disorder [None]
  - Product substitution issue [None]
  - Spinal pain [None]
  - Musculoskeletal pain [None]
  - Mobility decreased [None]
  - Pain in extremity [None]
  - Product quality issue [None]

NARRATIVE: CASE EVENT DATE: 20150308
